FAERS Safety Report 12667660 (Version 3)
Quarter: 2016Q3

REPORT INFORMATION
  Report Type: Report from Study
  Country: IT (occurrence: IT)
  Receive Date: 20160819
  Receipt Date: 20160909
  Transmission Date: 20161109
  Serious: Yes (Hospitalization)
  Sender: FDA-Public Use
  Company Number: IT-PFIZER INC-2016379173

PATIENT
  Age: 45 Year
  Sex: Male
  Weight: 65 kg

DRUGS (10)
  1. OXYCONTIN [Concomitant]
     Active Substance: OXYCODONE HYDROCHLORIDE
     Dosage: 10 MG, 2X/DAY
  2. FUCICORT [Concomitant]
     Active Substance: BETAMETHASONE VALERATE\FUSIDIC ACID
     Dosage: UNK
  3. RANITIDINE. [Concomitant]
     Active Substance: RANITIDINE
     Dosage: 150 MG, UNK
  4. URBASON /00049601/ [Concomitant]
     Active Substance: METHYLPREDNISOLONE
     Indication: IMMUNOSUPPRESSION
     Dosage: 4 MG, DAILY
     Dates: start: 2002
  5. ZYLORIC [Concomitant]
     Active Substance: ALLOPURINOL
     Dosage: 300 MG, ALTERNATE DAY
  6. RAPAMUNE [Suspect]
     Active Substance: SIROLIMUS
     Indication: IMMUNOSUPPRESSION
     Dosage: 2 MG/1 MG EVERY OTHER DAY
     Dates: start: 2002, end: 20151031
  7. ARANESP [Concomitant]
     Active Substance: DARBEPOETIN ALFA
     Dosage: UNK, EVERY 3 WEEKS
  8. DACOMITINIB [Suspect]
     Active Substance: DACOMITINIB
     Indication: SQUAMOUS CELL CARCINOMA OF SKIN
     Dosage: 30 MG, CYCLIC (30 MG DAILY C1D1)
     Route: 048
     Dates: start: 20151013, end: 20151030
  9. SEACOR [Concomitant]
     Active Substance: OMEGA-3 FATTY ACIDS
  10. SELEPARINA [Concomitant]
     Active Substance: NADROPARIN CALCIUM
     Dosage: 0.6 IU, UNK
     Route: 058

REACTIONS (1)
  - Renal failure [Recovered/Resolved]

NARRATIVE: CASE EVENT DATE: 20151031
